FAERS Safety Report 12573829 (Version 6)
Quarter: 2020Q4

REPORT INFORMATION
  Report Type: Report from Study
  Country: US (occurrence: US)
  Receive Date: 20160720
  Receipt Date: 20201228
  Transmission Date: 20210113
  Serious: Yes (Hospitalization, Other)
  Sender: FDA-Public Use
  Company Number: US-SA-2014SA146715

PATIENT

DRUGS (3)
  1. AGALSIDASE BETA [Suspect]
     Active Substance: AGALSIDASE BETA
     Dosage: 70 MG
     Route: 041
     Dates: start: 20150916
  2. AGALSIDASE BETA [Suspect]
     Active Substance: AGALSIDASE BETA
     Indication: FABRY^S DISEASE
     Dosage: 1 MG/KG,QOW
     Route: 041
     Dates: start: 20030630
  3. AGALSIDASE BETA [Suspect]
     Active Substance: AGALSIDASE BETA
     Dosage: 70 MG
     Route: 058
     Dates: start: 20150916

REACTIONS (17)
  - Nephrolithiasis [Recovering/Resolving]
  - Abdominal discomfort [Not Recovered/Not Resolved]
  - Vomiting [Not Recovered/Not Resolved]
  - Abdominal distension [Unknown]
  - Product dose omission issue [Unknown]
  - Heart rate decreased [Not Recovered/Not Resolved]
  - Weight decreased [Not Recovered/Not Resolved]
  - Dysphagia [Recovering/Resolving]
  - Incorrect dose administered [Unknown]
  - Dyskinesia [Not Recovered/Not Resolved]
  - Malaise [Not Recovered/Not Resolved]
  - Incorrect route of product administration [Unknown]
  - Hypotension [Not Recovered/Not Resolved]
  - Atypical pneumonia [Unknown]
  - Muscle twitching [Recovered/Resolved]
  - Swelling face [Unknown]
  - Chills [Recovering/Resolving]

NARRATIVE: CASE EVENT DATE: 2003
